FAERS Safety Report 13742148 (Version 1)
Quarter: 2017Q3

REPORT INFORMATION
  Report Type: Spontaneous
  Country: US (occurrence: US)
  Receive Date: 20170711
  Receipt Date: 20170711
  Transmission Date: 20171127
  Serious: Yes (Death)
  Sender: FDA-Public Use
  Company Number: None

PATIENT
  Age: 87 Year
  Sex: Female
  Weight: 56 kg

DRUGS (2)
  1. ALTEPLASE 50 MG / 50 ML [Suspect]
     Active Substance: ALTEPLASE
     Indication: CEREBRAL ARTERY OCCLUSION
     Dates: start: 20170420, end: 20170420
  2. ALTEPLASE 50 MG / 50 ML [Suspect]
     Active Substance: ALTEPLASE
     Indication: ISCHAEMIC STROKE
     Dates: start: 20170420, end: 20170420

REACTIONS (3)
  - Brain midline shift [None]
  - Thrombectomy [None]
  - Haemorrhagic stroke [None]

NARRATIVE: CASE EVENT DATE: 20170421
